FAERS Safety Report 7387145-1 (Version None)
Quarter: 2011Q1

REPORT INFORMATION
  Report Type: 
  Country: None (occurrence: None)
  Receive Date: 20110331
  Receipt Date: 20110307
  Transmission Date: 20110831
  Serious: Yes (Other)
  Sender: FDA-Public Use
  Company Number: A0917884A

PATIENT
  Sex: Female

DRUGS (2)
  1. VOTRIENT [Suspect]
     Dosage: 600MG PER DAY
     Route: 065
     Dates: start: 20110225, end: 20110308
  2. STEROIDS [Suspect]

REACTIONS (7)
  - BLOOD PRESSURE INCREASED [None]
  - STOMATITIS [None]
  - NASAL ULCER [None]
  - ORAL CANDIDIASIS [None]
  - FATIGUE [None]
  - NASAL CANDIDIASIS [None]
  - BRAIN OEDEMA [None]
